FAERS Safety Report 9617699 (Version 4)
Quarter: 2014Q2

REPORT INFORMATION
  Report Type: Report from Study
  Country: ZA (occurrence: ZA)
  Receive Date: 20131011
  Receipt Date: 20140520
  Transmission Date: 20141212
  Serious: Yes (Hospitalization, Other)
  Sender: FDA-Public Use
  Company Number: ZA-ASTRAZENECA-2013SE74945

PATIENT
  Age: 24495 Day
  Sex: Female

DRUGS (13)
  1. AZD6140 [Suspect]
     Indication: CORONARY ARTERY DISEASE
     Route: 048
     Dates: start: 20111020, end: 20131007
  2. ASA [Concomitant]
     Route: 048
  3. LASIX [Concomitant]
     Indication: DYSPNOEA
     Route: 048
     Dates: start: 20120215
  4. BILOCOR [Concomitant]
     Indication: HYPERTENSION
     Route: 048
  5. SPIRACTIN [Concomitant]
     Indication: DYSPNOEA
     Route: 048
     Dates: start: 20120118
  6. SIMVASTATIN [Concomitant]
     Indication: HYPERLIPIDAEMIA
     Route: 048
  7. BEZAFIBRATE [Concomitant]
     Indication: HYPERTRIGLYCERIDAEMIA
     Route: 048
  8. ALTOSEC [Concomitant]
     Indication: PROPHYLAXIS AGAINST GASTROINTESTINAL ULCER
     Route: 048
  9. NUELIN [Concomitant]
     Indication: DYSPNOEA
     Route: 048
     Dates: start: 20111104
  10. FOXAIR [Concomitant]
     Indication: ASTHMA
     Route: 055
     Dates: start: 20120610
  11. GLUCOPHAGE FORTE [Concomitant]
     Indication: TYPE 2 DIABETES MELLITUS
     Route: 048
  12. PREXUM [Concomitant]
     Indication: HYPERTENSION
     Route: 048
     Dates: start: 20120118
  13. TREPELINE [Concomitant]
     Indication: DEPRESSION
     Route: 048

REACTIONS (1)
  - Anaemia [Recovered/Resolved]
